FAERS Safety Report 16221349 (Version 1)
Quarter: 2019Q2

REPORT INFORMATION
  Report Type: Spontaneous
  Country: ES (occurrence: ES)
  Receive Date: 20190422
  Receipt Date: 20190422
  Transmission Date: 20190711
  Serious: Yes (Life-Threatening, Hospitalization)
  Sender: FDA-Public Use
  Company Number: ES-TEVA-2019-ES-1039967

PATIENT
  Age: 48 Year
  Sex: Male
  Weight: 46 kg

DRUGS (1)
  1. TACROLIMUS (2694A) [Suspect]
     Active Substance: TACROLIMUS
     Indication: CORD BLOOD TRANSPLANT THERAPY
     Dosage: .8 MILLIGRAM DAILY; 0.8 MG CONTINUOUS INFUSION
     Route: 042
     Dates: start: 20181229, end: 20190103

REACTIONS (1)
  - Thrombotic microangiopathy [Recovering/Resolving]

NARRATIVE: CASE EVENT DATE: 20190104
